FAERS Safety Report 13837229 (Version 1)
Quarter: 2017Q3

REPORT INFORMATION
  Report Type: Spontaneous
  Country: US (occurrence: US)
  Receive Date: 20170804
  Receipt Date: 20170804
  Transmission Date: 20171127
  Serious: No
  Sender: FDA-Public Use
  Company Number: US-ROCHE-779240

PATIENT
  Sex: Female

DRUGS (2)
  1. BONIVA [Suspect]
     Active Substance: IBANDRONATE SODIUM
     Indication: PRODUCT USED FOR UNKNOWN INDICATION
     Dosage: DISCONTINUED FOR TWO MONTHS
     Route: 065
  2. BONIVA [Suspect]
     Active Substance: IBANDRONATE SODIUM
     Route: 065

REACTIONS (3)
  - Tooth loss [Unknown]
  - Weight bearing difficulty [Not Recovered/Not Resolved]
  - Drug hypersensitivity [Unknown]
